FAERS Safety Report 13535872 (Version 1)
Quarter: 2017Q2

REPORT INFORMATION
  Report Type: Spontaneous
  Country: ES (occurrence: ES)
  Receive Date: 20170511
  Receipt Date: 20170511
  Transmission Date: 20170830
  Serious: Yes (Other)
  Sender: FDA-Public Use
  Company Number: ES-ACCORD-051235

PATIENT
  Sex: Male

DRUGS (5)
  1. QUETIAPINE. [Suspect]
     Active Substance: QUETIAPINE
     Indication: COMPULSIVE HOARDING
     Dates: start: 201506, end: 201506
  2. PRAMIPEXOLE/PRAMIPEXOLE DIHYDROCHLORIDE [Suspect]
     Active Substance: PRAMIPEXOLE DIHYDROCHLORIDE
     Indication: PARKINSON^S DISEASE
     Dates: start: 201203, end: 201303
  3. RASAGILINE/RASAGILINE MESYLATE [Concomitant]
     Active Substance: RASAGILINE MESYLATE
     Indication: PARKINSON^S DISEASE
     Dates: start: 201401
  4. CARBIDOPA/LEVODOPA [Suspect]
     Active Substance: CARBIDOPA\LEVODOPA
     Indication: PARKINSON^S DISEASE
     Dosage: CARBIDOPA 25 MG, LEVODOPA 100 MG
     Dates: start: 201407, end: 201601
  5. ROTIGOTINE [Suspect]
     Active Substance: ROTIGOTINE
     Indication: PARKINSON^S DISEASE
     Dates: start: 201303

REACTIONS (5)
  - Somnolence [Unknown]
  - Impulse-control disorder [Recovered/Resolved]
  - Compulsive shopping [None]
  - Loss of personal independence in daily activities [None]
  - Stereotypy [Recovered/Resolved]

NARRATIVE: CASE EVENT DATE: 201303
